FAERS Safety Report 8354778-5 (Version None)
Quarter: 2012Q2

REPORT INFORMATION
  Report Type: 
  Country: None (occurrence: None)
  Receive Date: 20120511
  Receipt Date: 20120503
  Transmission Date: 20120825
  Serious: Yes (Other)
  Sender: FDA-Public Use
  Company Number: PHHY2012BR038363

PATIENT
  Sex: Female
  Weight: 72 kg

DRUGS (5)
  1. DIOVAN [Suspect]
     Indication: HYPERTENSION
     Dosage: 160 MG, UNK
  2. DIOVAN [Suspect]
     Indication: TACHYCARDIA
  3. GALVUS MET [Suspect]
     Indication: DIABETES MELLITUS
     Dosage: 1 DF, BID (ONE TABLET IN THE MORNING AND ANOTHER AT NIGHT)
     Route: 048
  4. DIOVAN [Suspect]
     Indication: ARRHYTHMIA
  5. ATENOLOL [Suspect]
     Dosage: 25 MG, UNK

REACTIONS (4)
  - EYE DISORDER [None]
  - HYPERGLYCAEMIA [None]
  - PAIN IN EXTREMITY [None]
  - ARRHYTHMIA [None]
